FAERS Safety Report 5503154-9 (Version None)
Quarter: 2007Q4

REPORT INFORMATION
  Report Type: 
  Country: None (occurrence: None)
  Receive Date: 20071031
  Receipt Date: 20071024
  Transmission Date: 20080405
  Serious: Yes (Life-Threatening, Hospitalization, Disabling)
  Sender: FDA-Public Use
  Company Number: ZA-AVENTIS-200717914GDDC

PATIENT
  Age: 71 Year
  Sex: Female

DRUGS (7)
  1. ARAVA [Suspect]
     Indication: RHEUMATOID ARTHRITIS
     Route: 048
     Dates: start: 20040901, end: 20070701
  2. DAPAMAX [Concomitant]
     Indication: HYPERTENSION
     Dosage: DOSE QUANTITY: 1
     Route: 048
     Dates: start: 20000101, end: 20050101
  3. OMEPRAZOLE [Concomitant]
     Indication: GASTRITIS
     Route: 048
     Dates: start: 20060101
  4. PREXUM [Concomitant]
     Indication: HYPERTENSION
     Dosage: DOSE QUANTITY: 1
     Route: 048
     Dates: start: 20060101
  5. IMDUR [Concomitant]
     Route: 048
     Dates: start: 20060101
  6. ECOTRIN [Concomitant]
     Route: 048
  7. CILIFT [Concomitant]
     Dosage: DOSE: UNK

REACTIONS (3)
  - LUNG INFILTRATION [None]
  - PULMONARY GRANULOMA [None]
  - PULMONARY HYPERTENSION [None]
